FAERS Safety Report 6431636-4 (Version None)
Quarter: 2009Q4

REPORT INFORMATION
  Report Type: 
  Country: None (occurrence: None)
  Receive Date: 20091103
  Receipt Date: 20091019
  Transmission Date: 20100525
  Serious: Yes (Hospitalization)
  Sender: FDA-Public Use
  Company Number: 003323

PATIENT
  Age: 58 Year
  Sex: Male
  Weight: 82.6 kg

DRUGS (4)
  1. PLETAL [Suspect]
     Indication: CEREBRAL INFARCTION
     Dosage: 81 MG, QD, ORAL
     Route: 048
     Dates: start: 20050521, end: 20080722
  2. PLETAL [Suspect]
     Indication: CEREBRAL INFARCTION
     Dosage: 81 MG, QD, ORAL
     Route: 048
     Dates: start: 20080731
  3. DIOVANE (VALSARTAN) TABLET [Concomitant]
  4. NORVASC [Concomitant]

REACTIONS (1)
  - CALCULUS URETERIC [None]
